FAERS Safety Report 4979619-5 (Version None)
Quarter: 2006Q2

REPORT INFORMATION
  Report Type: 
  Country: None (occurrence: None)
  Receive Date: 20060418
  Receipt Date: 20060404
  Transmission Date: 20061013
  Serious: Yes (Hospitalization)
  Sender: FDA-Public Use
  Company Number: DE-2006-007879

PATIENT
  Age: 76 Year
  Sex: Male
  Weight: 102 kg

DRUGS (7)
  1. CAMPATH [Suspect]
     Indication: T-CELL CHRONIC LYMPHOCYTIC LEUKAEMIA
     Dosage: 30 MG, SUBCUTANEOUS
     Route: 058
     Dates: start: 20030708, end: 20031001
  2. FLUDARABINE PHOSPHATE [Suspect]
  3. CYCLOPHOSPHAMIDE [Suspect]
  4. MITOXANTRONE [Suspect]
  5. DECORTIN [Concomitant]
  6. PARACETAMOL [Concomitant]
  7. TAVEGIL /GFR/ (CLEMASTINE) [Concomitant]

REACTIONS (7)
  - AGRANULOCYTOSIS [None]
  - ANAEMIA [None]
  - ANGINA PECTORIS [None]
  - AORTIC VALVE STENOSIS [None]
  - SYNCOPE [None]
  - THROMBOCYTOPENIA [None]
  - VENTRICULAR ARRHYTHMIA [None]
